FAERS Safety Report 7030432-7 (Version None)
Quarter: 2010Q4

REPORT INFORMATION
  Report Type: 
  Country: None (occurrence: None)
  Receive Date: 20101001
  Receipt Date: 20100929
  Transmission Date: 20110411
  Serious: Yes (Other)
  Sender: FDA-Public Use
  Company Number: 2010SP051848

PATIENT
  Age: 61 Year
  Sex: Male

DRUGS (2)
  1. PEG-INTRON [Suspect]
     Indication: HEPATITIS C
     Dosage: SC
     Route: 058
  2. REBETOL [Suspect]
     Indication: HEPATITIS C
     Dosage: CHRONIC HEPATITIS C
     Route: 004

REACTIONS (5)
  - BLOOD CULTURE POSITIVE [None]
  - BRAIN ABSCESS [None]
  - ESCHERICHIA INFECTION [None]
  - MENINGITIS BACTERIAL [None]
  - SEPSIS [None]
